FAERS Safety Report 7380013-0 (Version None)
Quarter: 2011Q1

REPORT INFORMATION
  Report Type: 
  Country: None (occurrence: None)
  Receive Date: 20110329
  Receipt Date: 20110318
  Transmission Date: 20110831
  Serious: Yes (Other)
  Sender: FDA-Public Use
  Company Number: US-JNJFOC-20110309996

PATIENT
  Sex: Female
  Weight: 58.97 kg

DRUGS (1)
  1. PANCREAZE [Suspect]
     Indication: PANCREATIC INSUFFICIENCY
     Dosage: 4 CAPSULES BEFORE EVERY SNACK AND EVERY MEAL
     Route: 048

REACTIONS (5)
  - ABDOMINAL DISTENSION [None]
  - DIARRHOEA [None]
  - WEIGHT INCREASED [None]
  - ABDOMINAL PAIN UPPER [None]
  - CONSTIPATION [None]
